FAERS Safety Report 8401330-9 (Version None)
Quarter: 2012Q2

REPORT INFORMATION
  Report Type: 
  Country: None (occurrence: None)
  Receive Date: 20120525
  Receipt Date: 20090206
  Transmission Date: 20120825
  Serious: Yes (Other)
  Sender: FDA-Public Use
  Company Number: 09-AUR-08997

PATIENT
  Age: 57 Year
  Sex: Male
  Weight: 86.2 kg

DRUGS (1)
  1. SIMVASTATIN [Suspect]
     Indication: TYPE V HYPERLIPIDAEMIA
     Dosage: (40 MG), ORAL
     Route: 048

REACTIONS (17)
  - RESTRICTIVE PULMONARY DISEASE [None]
  - MOVEMENT DISORDER [None]
  - DYSPNOEA [None]
  - VIRAL INFECTION [None]
  - ACTIVITIES OF DAILY LIVING IMPAIRED [None]
  - HYPOXIA [None]
  - MALAISE [None]
  - RESPIRATORY GAS EXCHANGE DISORDER [None]
  - BODY MASS INDEX DECREASED [None]
  - UPPER RESPIRATORY TRACT INFECTION [None]
  - MUSCULAR WEAKNESS [None]
  - HYPOVENTILATION [None]
  - MYOPATHY [None]
  - DYSPNOEA EXERTIONAL [None]
  - FATIGUE [None]
  - DEVICE MALFUNCTION [None]
  - FALL [None]
